FAERS Safety Report 9468984 (Version 1)
Quarter: 2013Q3

REPORT INFORMATION
  Report Type: Spontaneous
  Country: GB (occurrence: GB)
  Receive Date: 20130821
  Receipt Date: 20130821
  Transmission Date: 20140515
  Serious: Yes (Hospitalization)
  Sender: FDA-Public Use
  Company Number: GB-MYLANLABS-2013S1018036

PATIENT
  Age: 73 Year
  Sex: Female

DRUGS (9)
  1. HYDRALAZINE [Suspect]
     Indication: HYPERTENSION
     Route: 065
  2. DOXAZOSIN [Concomitant]
     Indication: HYPERTENSION
     Route: 065
  3. KARVEA HCT [Concomitant]
     Dosage: IRBESARTAN 300MG/HYDROCHLOROTHIAZIDE 12.5MG ONCE DAILY
     Route: 065
  4. MOXONIDINE [Concomitant]
     Route: 065
  5. ATENOLOL [Concomitant]
     Route: 065
  6. SODIUM FEREDETATE [Concomitant]
     Route: 065
  7. LANSOPRAZOLE [Concomitant]
     Route: 065
  8. PRAVASTATIN [Concomitant]
     Route: 065
  9. FENTANYL [Concomitant]
     Dosage: 75 MICROGRAMS/HOUR
     Route: 065

REACTIONS (2)
  - Posterior reversible encephalopathy syndrome [Recovered/Resolved]
  - Arthralgia [Unknown]
